FAERS Safety Report 16547470 (Version 2)
Quarter: 2019Q3

REPORT INFORMATION
  Report Type: Report from Study
  Country: None (occurrence: CH)
  Receive Date: 20190709
  Receipt Date: 20190912
  Transmission Date: 20191004
  Serious: Yes (Hospitalization)
  Sender: FDA-Public Use
  Company Number: CH-ABBVIE-19K-151-2845702-00

PATIENT
  Sex: Male

DRUGS (3)
  1. DUODOPA [Suspect]
     Active Substance: CARBIDOPA\LEVODOPA
     Dosage: MORNING DOSE: 13 ML; CONTINUOUS RATE DAY: 5.1 ML/H; EXTRA DOSE: 3 ML, 16 H THERAPY
     Route: 050
     Dates: start: 20140127, end: 20140815
  2. DUODOPA [Suspect]
     Active Substance: CARBIDOPA\LEVODOPA
     Dosage: MORNING DOSE: 13 ML; CONTINUOUS RATE DAY: 5 ML/H; EXTRA DOSE: 3 ML, 16 H THERAPY
     Route: 050
     Dates: start: 20140815
  3. DUODOPA [Suspect]
     Active Substance: CARBIDOPA\LEVODOPA
     Indication: PARKINSON^S DISEASE
     Route: 050
     Dates: start: 20140115, end: 20140127

REACTIONS (3)
  - Insomnia [Unknown]
  - Tremor [Unknown]
  - Mobility decreased [Unknown]
